FAERS Safety Report 24541468 (Version 3)
Quarter: 2024Q4

REPORT INFORMATION
  Report Type: Spontaneous
  Country: TR (occurrence: TR)
  Receive Date: 20241023
  Receipt Date: 20241219
  Transmission Date: 20250115
  Serious: Yes (Death, Life-Threatening, Hospitalization, Other)
  Sender: ASTELLAS
  Company Number: TR-GILEAD-2024-0691213

PATIENT
  Age: 15 Year
  Sex: Male

DRUGS (11)
  1. AMBISOME [Suspect]
     Active Substance: AMPHOTERICIN B
     Indication: Disseminated cryptococcosis
     Dosage: 5 MG/KG, QD
     Route: 050
     Dates: start: 20220808, end: 20220829
  2. PROGRAF [Suspect]
     Active Substance: TACROLIMUS
     Indication: Liver transplant
     Dosage: 2X5 MG
     Route: 065
     Dates: start: 20200202, end: 20220801
  3. PROGRAF [Suspect]
     Active Substance: TACROLIMUS
     Route: 065
  4. FLUCYTOSINE [Concomitant]
     Active Substance: FLUCYTOSINE
     Indication: Product used for unknown indication
     Dosage: 100 MG/KG, QD
     Route: 042
  5. PIPERACILLIN AND TAZOBACTAM [Concomitant]
     Active Substance: PIPERACILLIN SODIUM\TAZOBACTAM SODIUM
     Indication: Antifungal prophylaxis
     Dosage: IN THE PERIOPERATIVE PERIOD
     Route: 065
  6. SULFAMETHOXAZOLE\TRIMETHOPRIM [Concomitant]
     Active Substance: SULFAMETHOXAZOLE\TRIMETHOPRIM
     Indication: Antifungal prophylaxis
     Dosage: FOR 90 DAYS
     Route: 065
  7. FLUCONAZOLE [Concomitant]
     Active Substance: FLUCONAZOLE
     Indication: Antifungal prophylaxis
     Dosage: FOR 90 DAYS
     Route: 065
  8. PREDNISOLONE [Concomitant]
     Active Substance: PREDNISOLONE
     Indication: Liver transplant
     Route: 065
  9. PREDNISOLONE [Concomitant]
     Active Substance: PREDNISOLONE
     Route: 065
  10. MYCOPHENOLATE MOFETIL [Concomitant]
     Active Substance: MYCOPHENOLATE MOFETIL
     Indication: Liver transplant
     Dosage: DOSE REDUCED
     Route: 065
  11. MYCOPHENOLATE MOFETIL [Concomitant]
     Active Substance: MYCOPHENOLATE MOFETIL
     Route: 065

REACTIONS (7)
  - Disseminated cryptococcosis [Fatal]
  - General physical health deterioration [Fatal]
  - Pneumonia [Fatal]
  - Pancreatitis [Fatal]
  - Gastrointestinal haemorrhage [Fatal]
  - Shock [Fatal]
  - Drug ineffective [Fatal]

NARRATIVE: CASE EVENT DATE: 20220801
